FAERS Safety Report 26043804 (Version 1)
Quarter: 2025Q4

REPORT INFORMATION
  Report Type: Spontaneous
  Country: US (occurrence: US)
  Receive Date: 20251114
  Receipt Date: 20251114
  Transmission Date: 20260117
  Serious: No
  Sender: CIPLA
  Company Number: US-CIPLA LTD.-2025US14198

PATIENT

DRUGS (1)
  1. LENALIDOMIDE [Suspect]
     Active Substance: LENALIDOMIDE
     Indication: Plasma cell myeloma
     Dosage: 5 MILLIGRAM, QD (TAKE 1 CAPSULE BY MOUTH ONCE A DAY ON DAYS 1-21 FOLLOWED BY 7 DAYS OFF OF A 28 DAY
     Route: 048

REACTIONS (2)
  - Rash [Not Recovered/Not Resolved]
  - Product physical issue [Unknown]
